FAERS Safety Report 9263763 (Version 2)
Quarter: 2013Q2

REPORT INFORMATION
  Report Type: Report from Study
  Country: DE (occurrence: DE)
  Receive Date: 20130430
  Receipt Date: 20130610
  Transmission Date: 20140414
  Serious: Yes (Hospitalization)
  Sender: FDA-Public Use
  Company Number: DE-TEVA-394730ISR

PATIENT
  Age: 80 Year
  Sex: Female
  Weight: 60 kg

DRUGS (3)
  1. PACLITAXEL [Suspect]
     Indication: OVARIAN CANCER
     Dosage: 288.75 UNKNOWN DAILY; LAST DOSE PRIOR SAE 27-MAR-2013
     Route: 042
     Dates: start: 20130306
  2. CARBOPLATIN [Suspect]
     Indication: OVARIAN CANCER
     Dosage: 320 MILLIGRAM DAILY; LAST DOSE PRIOR SAE 27-MAR-2013
     Route: 042
     Dates: start: 20130306
  3. BEVACIZUMAB [Suspect]
     Dosage: 900 MILLIGRAM DAILY; LAST DOSE PRIOR SAE 27-MAR-2013
     Route: 042

REACTIONS (6)
  - Diarrhoea [Recovered/Resolved]
  - General physical health deterioration [Not Recovered/Not Resolved]
  - Cough [Not Recovered/Not Resolved]
  - Dyspnoea [Not Recovered/Not Resolved]
  - Nausea [Not Recovered/Not Resolved]
  - Vomiting [Not Recovered/Not Resolved]
